FAERS Safety Report 11880846 (Version 1)
Quarter: 2015Q4

REPORT INFORMATION
  Report Type: Spontaneous
  Country: IT (occurrence: IT)
  Receive Date: 20151230
  Receipt Date: 20151230
  Transmission Date: 20160305
  Serious: Yes (Other)
  Sender: FDA-Public Use
  Company Number: IT-MALLINCKRODT-T201506091

PATIENT
  Age: 78 Year
  Sex: Female
  Weight: 70 kg

DRUGS (1)
  1. EXALGO [Suspect]
     Active Substance: HYDROMORPHONE HYDROCHLORIDE
     Indication: PRODUCT USED FOR UNKNOWN INDICATION
     Dosage: 160 MG (17 IN 1 TOTAL)
     Route: 048
     Dates: start: 20151221, end: 20151221

REACTIONS (2)
  - Incorrect dose administered [Unknown]
  - Accidental overdose [Unknown]

NARRATIVE: CASE EVENT DATE: 20151221
